FAERS Safety Report 7101573-0 (Version None)
Quarter: 2010Q4

REPORT INFORMATION
  Report Type: 
  Country: None (occurrence: None)
  Receive Date: 20101115
  Receipt Date: 20101110
  Transmission Date: 20110411
  Serious: Yes (Other)
  Sender: FDA-Public Use
  Company Number: GR-PFIZER INC-2010144442

PATIENT
  Sex: Female

DRUGS (5)
  1. SOMAVERT [Suspect]
     Dosage: UNK
     Route: 058
     Dates: start: 20071114
  2. SANDOSTATIN [Concomitant]
     Dosage: UNK
  3. ANGORON [Concomitant]
     Dosage: UNK
  4. DIOVAN HCT [Concomitant]
     Dosage: UNK
  5. LACIDIPINE [Concomitant]
     Dosage: UNK

REACTIONS (3)
  - ANGINA PECTORIS [None]
  - ATRIAL FIBRILLATION [None]
  - MALAISE [None]
